FAERS Safety Report 10664682 (Version 2)
Quarter: 2014Q4

REPORT INFORMATION
  Report Type: Spontaneous
  Country: US (occurrence: US)
  Receive Date: 20141219
  Receipt Date: 20141219
  Transmission Date: 20150529
  Serious: No
  Sender: FDA-Public Use
  Company Number: US-009507513-1201USA03322

PATIENT
  Sex: Male

DRUGS (3)
  1. FINASTERIDE. [Suspect]
     Active Substance: FINASTERIDE
     Dosage: 1.25 MG, UNK
     Route: 048
     Dates: start: 2007, end: 2011
  2. PROPECIA [Suspect]
     Active Substance: FINASTERIDE
     Indication: ALOPECIA
     Dosage: 1 MG, UNK
     Route: 048
     Dates: start: 2007, end: 2011
  3. FINASTERIDE. [Suspect]
     Active Substance: FINASTERIDE
     Dosage: 5 MG, UNK
     Route: 048
     Dates: start: 20100414

REACTIONS (17)
  - Nasal septum deviation [Unknown]
  - Blood pressure increased [Unknown]
  - Loss of libido [Unknown]
  - Erectile dysfunction [Unknown]
  - Upper respiratory tract infection [Unknown]
  - Hypersomnia [Unknown]
  - Asthma [Unknown]
  - Bronchitis [Unknown]
  - Pollakiuria [Unknown]
  - Anxiety [Unknown]
  - Eye pain [Unknown]
  - Sexual dysfunction [Not Recovered/Not Resolved]
  - Sleep apnoea syndrome [Unknown]
  - Depression [Unknown]
  - Hyperlipidaemia [Unknown]
  - Cognitive disorder [Not Recovered/Not Resolved]
  - Benign prostatic hyperplasia [Unknown]

NARRATIVE: CASE EVENT DATE: 2008
